FAERS Safety Report 8204566-5 (Version None)
Quarter: 2012Q1

REPORT INFORMATION
  Report Type: 
  Country: None (occurrence: None)
  Receive Date: 20120313
  Receipt Date: 20120308
  Transmission Date: 20120608
  Serious: Yes (Hospitalization, Other)
  Sender: FDA-Public Use
  Company Number: BR-PFIZER INC-2012062369

PATIENT
  Age: 57 Year
  Sex: Male

DRUGS (11)
  1. DICLOFENAC SODIUM [Concomitant]
     Indication: EPILEPSY
     Dosage: UNK
     Dates: start: 20110101
  2. MYLANTA PLUS [Concomitant]
     Indication: ULCER
     Dosage: UNK
     Dates: start: 20080101
  3. VALPROIC ACID [Concomitant]
     Indication: EPILEPSY
     Dosage: UNK
     Dates: start: 20020101
  4. CLONAZEPAM [Concomitant]
     Indication: EPILEPSY
     Dosage: UNK
     Dates: start: 19970101
  5. INDAPAMIDE [Concomitant]
     Indication: HYPERTENSION
     Dosage: UNK
     Dates: start: 20090101
  6. BROMOPRIDE [Concomitant]
     Indication: GASTRIC DISORDER
     Dosage: STRENGTH 10MG
     Dates: start: 20080101
  7. NAPRIX [Concomitant]
     Indication: HYPERTENSION
     Dosage: UNK
     Dates: start: 20080101
  8. CELEBREX [Suspect]
     Dosage: STRENGTH 200MG
     Route: 048
  9. BENICAR [Concomitant]
     Indication: HYPERTENSION
     Dosage: UNK
     Dates: start: 20080101
  10. LYRICA [Suspect]
     Dosage: UNK
     Route: 048
     Dates: start: 20110101
  11. TRILEPTAL [Concomitant]
     Indication: EPILEPSY
     Dosage: UNK
     Dates: start: 19970101

REACTIONS (8)
  - UMBILICAL HERNIA [None]
  - SPINAL DISORDER [None]
  - HYPERTROPHY [None]
  - HYDROCELE [None]
  - LIPOMA [None]
  - INGUINAL HERNIA [None]
  - HYPERTENSION [None]
  - CONVULSION [None]
